FAERS Safety Report 6603407-7 (Version None)
Quarter: 2010Q1

REPORT INFORMATION
  Report Type: 
  Country: None (occurrence: None)
  Receive Date: 20100226
  Receipt Date: 20090424
  Transmission Date: 20100710
  Serious: No
  Sender: FDA-Public Use
  Company Number: A0780579A

PATIENT
  Age: 51 Year
  Sex: Female

DRUGS (15)
  1. VALTREX [Suspect]
     Dosage: 500MG PER DAY
     Route: 048
     Dates: start: 20090417, end: 20090420
  2. MAGIC MOUTHWASH [Concomitant]
  3. TOPAMAX [Concomitant]
  4. SYNTHROID [Concomitant]
  5. NAPROXEN [Concomitant]
  6. CLARITIN [Concomitant]
  7. POTASSIUM [Concomitant]
  8. TRIAMTERENE AND HYDROCHLOROTHIAZIDE [Concomitant]
  9. CYCLOBENZAPRIN [Concomitant]
  10. WELLBUTRIN XL [Concomitant]
  11. CLONAZEPAM [Concomitant]
  12. AMBIEN [Concomitant]
  13. FLONASE [Concomitant]
  14. ALBUTEROL [Concomitant]
  15. NEURONTIN [Concomitant]

REACTIONS (8)
  - ABDOMINAL DISTENSION [None]
  - BEDRIDDEN [None]
  - DECREASED APPETITE [None]
  - FEELING ABNORMAL [None]
  - FLATULENCE [None]
  - HEADACHE [None]
  - NAUSEA [None]
  - OROPHARYNGEAL PAIN [None]
